FAERS Safety Report 6575373-4 (Version None)
Quarter: 2010Q1

REPORT INFORMATION
  Report Type: 
  Country: None (occurrence: None)
  Receive Date: 20100208
  Receipt Date: 20100208
  Transmission Date: 20100710
  Serious: Yes (Hospitalization)
  Sender: FDA-Public Use
  Company Number: None

PATIENT
  Sex: Male
  Weight: 83.4 kg

DRUGS (3)
  1. CARBOPLATIN [Suspect]
     Dosage: 286 MG
  2. ERBITUX [Suspect]
     Dosage: 493 MG
  3. TAXOL [Suspect]
     Dosage: 89 MG

REACTIONS (3)
  - DEHYDRATION [None]
  - NAUSEA [None]
  - VOMITING [None]
